FAERS Safety Report 9449190 (Version 2)
Quarter: 2013Q3

REPORT INFORMATION
  Report Type: Spontaneous
  Country: US (occurrence: US)
  Receive Date: 20130808
  Receipt Date: 20130822
  Transmission Date: 20140515
  Serious: Yes (Other)
  Sender: FDA-Public Use
  Company Number: US-B.I. PHARMACEUTICALS,INC./RIDGEFIELD-2013-BI-23541BP

PATIENT
  Sex: Female

DRUGS (9)
  1. SPIRIVA [Suspect]
     Indication: CHRONIC OBSTRUCTIVE PULMONARY DISEASE
     Dosage: 18 MCG
     Route: 055
     Dates: start: 20130729, end: 20130801
  2. ATROVENT [Suspect]
     Indication: CHRONIC OBSTRUCTIVE PULMONARY DISEASE
     Dosage: 34 MCG
     Route: 055
     Dates: start: 201207
  3. MICARDIS [Suspect]
     Indication: HYPERTENSION
     Dosage: 80 MCG
     Route: 048
  4. PROVENTIL [Concomitant]
     Indication: CHRONIC OBSTRUCTIVE PULMONARY DISEASE
     Route: 055
  5. HYDRALAZINE [Concomitant]
     Indication: HYPERTENSION
     Route: 048
  6. LANTUS [Concomitant]
     Indication: DIABETES MELLITUS
     Dosage: FORM: SUBCUTANEOUS STRENGTH: 28 UNITS; DAILY DOSE: 28 UNITS
     Route: 058
  7. METOPROLOL [Concomitant]
     Indication: HYPERTENSION
     Route: 048
  8. ASPIRIN [Concomitant]
     Indication: CEREBROVASCULAR ACCIDENT PROPHYLAXIS
     Dosage: 81 MG
     Route: 048
  9. HUMALOG [Concomitant]
     Indication: DIABETES MELLITUS
     Dosage: (SUBCUTANEOUS) STRENGTH: 5 UNITS; DAILY DOSE: 10 UNITS
     Route: 058

REACTIONS (5)
  - Colon cancer [Not Recovered/Not Resolved]
  - Colon cancer [Recovered/Resolved]
  - Chest pain [Recovered/Resolved]
  - Palpitations [Recovered/Resolved]
  - Thrombosis [Recovered/Resolved]
